FAERS Safety Report 16246391 (Version 3)
Quarter: 2019Q2

REPORT INFORMATION
  Report Type: Report from Study
  Country: None (occurrence: SE)
  Receive Date: 20190426
  Receipt Date: 20190611
  Transmission Date: 20190711
  Serious: Yes (Hospitalization)
  Sender: FDA-Public Use
  Company Number: SE-ABBVIE-19S-150-2689899-00

PATIENT
  Age: 66 Year
  Sex: Male

DRUGS (12)
  1. DUODOPA [Suspect]
     Active Substance: CARBIDOPA\LEVODOPA
     Dosage: MD: 8 ML
     Route: 050
     Dates: start: 201904, end: 20190425
  2. DUODOPA [Suspect]
     Active Substance: CARBIDOPA\LEVODOPA
     Dosage: MD 8.0 ML; CD: 5.2ML/H
     Route: 050
     Dates: start: 20190424, end: 20190424
  3. DUODOPA [Suspect]
     Active Substance: CARBIDOPA\LEVODOPA
     Dosage: INCREASED TO CD: 6.0 ML/H
     Route: 050
     Dates: start: 20190424, end: 201904
  4. DUODOPA [Suspect]
     Active Substance: CARBIDOPA\LEVODOPA
     Indication: PARKINSON^S DISEASE
     Route: 050
     Dates: start: 20150316
  5. DUODOPA [Suspect]
     Active Substance: CARBIDOPA\LEVODOPA
     Dosage: CD 3.8 ML/H,  XD: 1.0 ML
     Route: 050
     Dates: end: 20180321
  6. DUODOPA [Suspect]
     Active Substance: CARBIDOPA\LEVODOPA
     Dosage: MD: 6 ML, CD: 4.2 ML/H, XD: 2 ML
     Route: 050
     Dates: start: 20180321
  7. DUODOPA [Suspect]
     Active Substance: CARBIDOPA\LEVODOPA
     Dosage: MD: 6 ML, CD: 4.6 ML/H, XD: 2.2 ML
     Route: 050
     Dates: start: 20190226, end: 2019
  8. DUODOPA [Suspect]
     Active Substance: CARBIDOPA\LEVODOPA
     Dosage: DOSES DECREASED TO MD 10 ML, CD 5.4 ML/H AND ED 2.8 ML
     Route: 050
  9. DUODOPA [Suspect]
     Active Substance: CARBIDOPA\LEVODOPA
     Dosage: MD 6.0 ML, CD 5.2 ML/H AND XD 2.8 ML.
     Route: 050
     Dates: start: 2019, end: 20190424
  10. DUODOPA [Suspect]
     Active Substance: CARBIDOPA\LEVODOPA
     Dosage: MD: 10 ML
     Route: 050
     Dates: start: 20190425, end: 20190426
  11. DUODOPA [Suspect]
     Active Substance: CARBIDOPA\LEVODOPA
     Dosage: MD: 12 ML
     Route: 050
     Dates: start: 20190426
  12. COMTESS [Concomitant]
     Active Substance: ENTACAPONE
     Indication: PRODUCT USED FOR UNKNOWN INDICATION
     Route: 065

REACTIONS (4)
  - Tremor [Recovering/Resolving]
  - Reduced facial expression [Not Recovered/Not Resolved]
  - Therapeutic product effect incomplete [Not Recovered/Not Resolved]
  - Hallucination [Recovered/Resolved]

NARRATIVE: CASE EVENT DATE: 201901
